FAERS Safety Report 10381491 (Version 1)
Quarter: 2014Q1

REPORT INFORMATION
  Report Type: Spontaneous
  Country: US (occurrence: None)
  Receive Date: 20140306
  Receipt Date: 20140306
  Transmission Date: 20141002
  Serious: Yes (Other)
  Sender: FDA-Public Use
  Company Number: 163-21880-13023276

PATIENT
  Age: 65 Year
  Sex: Male

DRUGS (12)
  1. REVLIMID (LENALIDOMIDE) (10 MILLIGRAM, CAPSULES) [Suspect]
     Indication: PLASMA CELL MYELOMA
     Route: 048
     Dates: start: 20120111, end: 201207
  2. COUMADIN (WARFARIN SODIUM) [Concomitant]
  3. NEURONTIN (GABAPENTIN) [Concomitant]
  4. MULTIVITAMINS [Concomitant]
  5. FLOMAX (TAMSULOSIN HYDROCHLORIDE) [Concomitant]
  6. VESICARE (SOLIFENACIN SUCCINATE) [Concomitant]
  7. ZOMETA (ZOLEDRONIC ACID) [Concomitant]
  8. MORPHINE SULFATE ER (MORPHINE SULFATE) [Concomitant]
  9. OXYCODONE HCL [Concomitant]
  10. CALCIUM VITAMIN D (CALCIUM D3 ^STADA^) [Concomitant]
  11. VITAMIN B COMPLEX (B-KOMPLEX ^LECIVA^) [Concomitant]
  12. SENIOR VITAMIN (MULTIVITAMINS, COMBINATIONS) [Concomitant]

REACTIONS (2)
  - Neutropenia [None]
  - Monoclonal immunoglobulin present [None]
